FAERS Safety Report 18954606 (Version 1)
Quarter: 2021Q1

REPORT INFORMATION
  Report Type: Report from Study
  Country: US (occurrence: US)
  Receive Date: 20210301
  Receipt Date: 20210301
  Transmission Date: 20210420
  Serious: Yes (Other)
  Sender: FDA-Public Use
  Company Number: US-JNJFOC-20210235056

PATIENT
  Age: 67 Year
  Sex: Male
  Weight: 125 kg

DRUGS (2)
  1. TADALAFIL. [Concomitant]
     Active Substance: TADALAFIL
  2. SELEXIPAG [Suspect]
     Active Substance: SELEXIPAG
     Indication: PULMONARY ARTERIAL HYPERTENSION
     Route: 048

REACTIONS (3)
  - Haematochezia [Recovered/Resolved]
  - Arthralgia [Unknown]
  - Productive cough [Unknown]

NARRATIVE: CASE EVENT DATE: 202102
